FAERS Safety Report 7436734-4 (Version None)
Quarter: 2011Q2

REPORT INFORMATION
  Report Type: 
  Country: None (occurrence: None)
  Receive Date: 20110426
  Receipt Date: 20110419
  Transmission Date: 20111010
  Serious: Yes (Life-Threatening, Hospitalization, Other)
  Sender: FDA-Public Use
  Company Number: CA-ELI_LILLY_AND_COMPANY-CA201104005776

PATIENT
  Age: 8 Year
  Sex: Female

DRUGS (6)
  1. CLONAZEPAM [Concomitant]
     Dosage: UNK
     Route: 048
     Dates: start: 20100315, end: 20100315
  2. CLONAZEPAM [Concomitant]
     Indication: MOOD ALTERED
     Dosage: UNK
     Route: 048
     Dates: start: 20100112, end: 20100112
  3. ZYPREXA [Suspect]
     Indication: MOOD ALTERED
     Dosage: UNK
     Route: 048
     Dates: start: 20100112, end: 20100112
  4. ZYPREXA [Suspect]
     Dosage: UNK
     Route: 048
     Dates: start: 20100315, end: 20100315
  5. CLONAZEPAM [Concomitant]
     Dosage: UNK
     Route: 048
     Dates: start: 20100213, end: 20100213
  6. ZYPREXA [Suspect]
     Dosage: UNK
     Route: 048
     Dates: start: 20100213, end: 20100213

REACTIONS (6)
  - NIGHTMARE [None]
  - INTENTIONAL DRUG MISUSE [None]
  - MEDICAL OBSERVATION ABNORMAL [None]
  - CONVULSION [None]
  - COMA [None]
  - HOSPITALISATION [None]
